FAERS Safety Report 12291006 (Version 15)
Quarter: 2020Q3

REPORT INFORMATION
  Report Type: Spontaneous
  Country: US (occurrence: US)
  Receive Date: 20160421
  Receipt Date: 20200818
  Transmission Date: 20201102
  Serious: Yes (Hospitalization, Other)
  Sender: FDA-Public Use
  Company Number: US-PFIZER INC-2016172335

PATIENT
  Age: 68 Year
  Sex: Male
  Weight: 115 kg

DRUGS (8)
  1. LYRICA [Suspect]
     Active Substance: PREGABALIN
     Indication: LUMBAR RADICULOPATHY
     Dosage: 200 MG, 3X/DAY (THREE TIMES A DAY AT 6AM, 2PM AND 10PM)
     Route: 048
     Dates: start: 2016
  2. AMLODIPINE [Concomitant]
     Active Substance: AMLODIPINE BESYLATE
     Indication: BLOOD PRESSURE ABNORMAL
     Dosage: ^100 MG^, DAILY
  3. MOBIC [Concomitant]
     Active Substance: MELOXICAM
     Dosage: UNK, DAILY
  4. LYRICA [Suspect]
     Active Substance: PREGABALIN
     Indication: TYPE 2 DIABETES MELLITUS
     Dosage: 100 MG, 3X/DAY
     Route: 048
     Dates: start: 20160420, end: 2016
  5. LYRICA [Suspect]
     Active Substance: PREGABALIN
     Indication: DIABETIC NEUROPATHY
     Dosage: 100 MG, 3X/DAY
     Route: 048
     Dates: start: 20161123
  6. LYRICA [Suspect]
     Active Substance: PREGABALIN
     Indication: NEUROPATHY PERIPHERAL
     Dosage: 100 MG, 3X/DAY
     Route: 048
     Dates: start: 20170404
  7. LYRICA [Suspect]
     Active Substance: PREGABALIN
     Dosage: 270 MG, UNK
  8. LYRICA [Suspect]
     Active Substance: PREGABALIN
     Indication: POLYNEUROPATHY
     Dosage: 100 MG, 1 CAPSULE (100MG) 3X/DAY
     Route: 048
     Dates: start: 20160216, end: 2016

REACTIONS (3)
  - Weight decreased [Unknown]
  - Product dispensing issue [Unknown]
  - Pain in extremity [Not Recovered/Not Resolved]
